FAERS Safety Report 10164224 (Version 1)
Quarter: 2014Q2

REPORT INFORMATION
  Report Type: Spontaneous
  Country: US (occurrence: US)
  Receive Date: 20140510
  Receipt Date: 20140510
  Transmission Date: 20141212
  Serious: No
  Sender: FDA-Public Use
  Company Number: US-BRISTOL-MYERS SQUIBB COMPANY-20003828

PATIENT
  Age: 61 Year
  Sex: Female

DRUGS (7)
  1. BYETTA PEN DISPOSABLE [Suspect]
  2. METFORMIN HCL [Suspect]
  3. GLIPIZIDE [Suspect]
  4. ATIVAN [Concomitant]
  5. FLUOXETINE [Concomitant]
  6. PRILOSEC [Concomitant]
  7. LOVASTATIN [Concomitant]

REACTIONS (1)
  - Hypoglycaemia [Unknown]
